FAERS Safety Report 19674687 (Version 2)
Quarter: 2021Q3

REPORT INFORMATION
  Report Type: Spontaneous
  Country: JP (occurrence: JP)
  Receive Date: 20210809
  Receipt Date: 20210811
  Transmission Date: 20211014
  Serious: Yes (Hospitalization, Other)
  Sender: FDA-Public Use
  Company Number: JP-BAYER-2021-187621

PATIENT
  Age: 50 Year
  Sex: Male
  Weight: 80.7 kg

DRUGS (5)
  1. BAYASPIRIN 100 MG [Interacting]
     Active Substance: ASPIRIN
     Dosage: UNK
     Route: 048
     Dates: end: 201205
  2. AMOXICILLIN HYDRATE [Concomitant]
     Active Substance: AMOXICILLIN
     Indication: STREPTOCOCCAL INFECTION
  3. AVELOX [Suspect]
     Active Substance: MOXIFLOXACIN HYDROCHLORIDE
     Indication: STREPTOCOCCAL INFECTION
     Dosage: UNK
     Route: 048
     Dates: start: 2012
  4. CLOPIDOGREL SULFATE [Interacting]
     Active Substance: CLOPIDOGREL BISULFATE
     Dosage: UNK
     Route: 048
     Dates: end: 201205
  5. CLOPIDOGREL SULFATE [Interacting]
     Active Substance: CLOPIDOGREL BISULFATE
     Dosage: UNK
     Route: 048
     Dates: start: 201305

REACTIONS (6)
  - Toxic skin eruption [None]
  - Post procedural haemorrhage [Recovered/Resolved]
  - Blood loss anaemia [None]
  - Haemorrhage subcutaneous [Recovering/Resolving]
  - Acquired haemophilia [None]
  - Labelled drug-drug interaction medication error [Recovering/Resolving]

NARRATIVE: CASE EVENT DATE: 2012
